FAERS Safety Report 4654182-7 (Version None)
Quarter: 2005Q2

REPORT INFORMATION
  Report Type: 
  Country: None (occurrence: None)
  Receive Date: 20050504
  Receipt Date: 20050419
  Transmission Date: 20051028
  Serious: Yes (Hospitalization)
  Sender: FDA-Public Use
  Company Number: 2005BI008097

PATIENT
  Age: 37 Year
  Sex: Male
  Weight: 87.0906 kg

DRUGS (3)
  1. AVONEX [Suspect]
     Indication: MULTIPLE SCLEROSIS
     Dosage: 30 UG; QW; IM
     Route: 030
     Dates: start: 20040501
  2. NEURONTIN [Concomitant]
  3. TEGRETOL [Concomitant]

REACTIONS (13)
  - ANXIETY [None]
  - DEPRESSION [None]
  - DYSPEPSIA [None]
  - FATIGUE [None]
  - HEADACHE [None]
  - INFLUENZA LIKE ILLNESS [None]
  - MULTIPLE SCLEROSIS [None]
  - MUSCLE CONTRACTIONS INVOLUNTARY [None]
  - MYALGIA [None]
  - PAIN [None]
  - PULMONARY EMBOLISM [None]
  - PYREXIA [None]
  - TIC [None]
